FAERS Safety Report 12521035 (Version 2)
Quarter: 2016Q3

REPORT INFORMATION
  Report Type: Spontaneous
  Country: US (occurrence: US)
  Receive Date: 20160701
  Receipt Date: 20160715
  Transmission Date: 20161109
  Serious: No
  Sender: FDA-Public Use
  Company Number: US-TEVA-671935USA

PATIENT
  Age: 63 Year
  Sex: Male

DRUGS (2)
  1. MODAFINIL. [Suspect]
     Active Substance: MODAFINIL
     Indication: FATIGUE
  2. MODAFINIL. [Suspect]
     Active Substance: MODAFINIL
     Indication: SLEEP APNOEA SYNDROME
     Dosage: 100 MILLIGRAM DAILY;
     Dates: start: 20160511

REACTIONS (6)
  - Skin discolouration [Unknown]
  - Product preparation error [Unknown]
  - Drug ineffective [Unknown]
  - Vein disorder [Unknown]
  - Off label use [Unknown]
  - Drug dose omission [Unknown]

NARRATIVE: CASE EVENT DATE: 2016
